FAERS Safety Report 7043873-9 (Version None)
Quarter: 2010Q4

REPORT INFORMATION
  Report Type: 
  Country: None (occurrence: None)
  Receive Date: 20101013
  Receipt Date: 20101004
  Transmission Date: 20110411
  Serious: Yes (Other)
  Sender: FDA-Public Use
  Company Number: GB-PFIZER INC-2010125786

PATIENT
  Age: 55 Year
  Sex: Female

DRUGS (1)
  1. TOVIAZ [Suspect]
     Dosage: 1 MG, UNK

REACTIONS (2)
  - GLUCOSE TOLERANCE TEST ABNORMAL [None]
  - LIVER FUNCTION TEST ABNORMAL [None]
